FAERS Safety Report 13265320 (Version 1)
Quarter: 2017Q1

REPORT INFORMATION
  Report Type: Report from Study
  Country: US (occurrence: US)
  Receive Date: 20170223
  Receipt Date: 20170223
  Transmission Date: 20170428
  Serious: Yes (Other)
  Sender: FDA-Public Use
  Company Number: US-BAYER-2017-031685

PATIENT
  Age: 76 Year

DRUGS (1)
  1. NEXAVAR [Suspect]
     Active Substance: SORAFENIB
     Indication: HEPATOCELLULAR CARCINOMA
     Dosage: 400 MG, BID
     Route: 048
     Dates: start: 20161105

REACTIONS (6)
  - Diarrhoea [None]
  - Medical procedure [None]
  - Haemorrhage [None]
  - Drug dose omission [None]
  - Constipation [None]
  - Hypertension [None]
